FAERS Safety Report 8337804-9 (Version None)
Quarter: 2012Q2

REPORT INFORMATION
  Report Type: 
  Country: None (occurrence: None)
  Receive Date: 20120504
  Receipt Date: 20120427
  Transmission Date: 20120825
  Serious: Yes (Other)
  Sender: FDA-Public Use
  Company Number: SE-GLAXOSMITHKLINE-B0789484A

PATIENT
  Sex: Male

DRUGS (3)
  1. TRILEPTAL [Concomitant]
     Dosage: 2250MG PER DAY
     Route: 048
  2. POTIGA [Suspect]
     Indication: CONVULSION
     Route: 065
     Dates: start: 20120125, end: 20120220
  3. PHENOBARBITAL TAB [Concomitant]
     Dosage: 100MG PER DAY
     Route: 048

REACTIONS (1)
  - CONVULSION [None]
